FAERS Safety Report 8240573-4 (Version None)
Quarter: 2012Q1

REPORT INFORMATION
  Report Type: 
  Country: None (occurrence: None)
  Receive Date: 20120328
  Receipt Date: 20120313
  Transmission Date: 20120608
  Serious: Yes (Hospitalization)
  Sender: FDA-Public Use
  Company Number: US-ROCHE-1052069

PATIENT
  Sex: Female
  Weight: 81.72 kg

DRUGS (1)
  1. XELODA [Suspect]
     Indication: BREAST CANCER METASTATIC
     Route: 048
     Dates: start: 20111210, end: 20120225

REACTIONS (2)
  - THERAPEUTIC EMBOLISATION [None]
  - UNEVALUABLE EVENT [None]
